FAERS Safety Report 6866705-8 (Version None)
Quarter: 2010Q2

REPORT INFORMATION
  Report Type: 
  Country: None (occurrence: None)
  Receive Date: 20100601
  Receipt Date: 20100506
  Transmission Date: 20101027
  Serious: No
  Sender: FDA-Public Use
  Company Number: US201002005887

PATIENT
  Age: 54 Year
  Sex: Male
  Weight: 120.2 kg

DRUGS (7)
  1. BYETTA [Suspect]
     Indication: TYPE 2 DIABETES MELLITUS
     Dosage: 5 UG, 2/D, SUBCUTANEOUS
     Route: 058
     Dates: start: 20091101
  2. SYNTHROID [Concomitant]
  3. ACIPHEX [Concomitant]
  4. LISINOPRIL [Concomitant]
  5. JANUVIA (SITAGLIPITIN PHOSPHATE) [Concomitant]
  6. METFORMIN HCL [Concomitant]
  7. CRESTOR [Concomitant]

REACTIONS (6)
  - ACCIDENTAL OVERDOSE [None]
  - BLOOD GLUCOSE DECREASED [None]
  - BLOOD GLUCOSE INCREASED [None]
  - FEELING ABNORMAL [None]
  - INJECTION SITE MASS [None]
  - TREATMENT NONCOMPLIANCE [None]
